FAERS Safety Report 18853670 (Version 3)
Quarter: 2021Q2

REPORT INFORMATION
  Report Type: Spontaneous
  Country: US (occurrence: US)
  Receive Date: 20210205
  Receipt Date: 20210618
  Transmission Date: 20210717
  Serious: Yes (Other)
  Sender: FDA-Public Use
  Company Number: US-PFIZER INC-2019225161

PATIENT
  Age: 66 Year
  Sex: Male
  Weight: 78.47 kg

DRUGS (5)
  1. DILANTIN [Suspect]
     Active Substance: PHENYTOIN
     Dosage: 300 MG, DAILY  [TAKE 2 CAPSULES BY MOUTH IN THE MORNING, 1 CAPSULE BY MOUTH EVERY NIGHT]
     Route: 048
  2. DILANTIN [Suspect]
     Active Substance: PHENYTOIN
     Dosage: 200 MG, TWICE A DAY (2 CAPSULES BY MOUTH EVERY MORNING THEN 2 TABLETS BY MOUTH EVERY NIGHT)
     Route: 048
  3. DILANTIN [Suspect]
     Active Substance: PHENYTOIN
     Dosage: 500 MG, DAILY
  4. DILANTIN [Suspect]
     Active Substance: PHENYTOIN
     Indication: SEIZURE
     Dosage: UNK
     Dates: start: 1981
  5. DILANTIN [Suspect]
     Active Substance: PHENYTOIN
     Dosage: 200 MG, TWICE A DAY (TWO TABLETS IN MORNING AND TWO TABLETS AT NIGHT)
     Route: 048

REACTIONS (6)
  - Coordination abnormal [Unknown]
  - Gliosis [Unknown]
  - Balance disorder [Unknown]
  - Visual field defect [Unknown]
  - Encephalomalacia [Unknown]
  - Wrong dosage formulation [Unknown]

NARRATIVE: CASE EVENT DATE: 20201230
